FAERS Safety Report 8024546-2 (Version None)
Quarter: 2012Q1

REPORT INFORMATION
  Report Type: 
  Country: None (occurrence: None)
  Receive Date: 20120105
  Receipt Date: 20111223
  Transmission Date: 20120608
  Serious: Yes (Hospitalization, Other)
  Sender: FDA-Public Use
  Company Number: PHHY2011DE107664

PATIENT
  Sex: Male
  Weight: 52 kg

DRUGS (2)
  1. IRON SULFATETHIAMIN COMPOUND TAB [Concomitant]
     Dates: start: 20110101
  2. AFINITOR [Suspect]
     Indication: RENAL CELL CARCINOMA
     Dosage: 10 MG, QD
     Route: 048
     Dates: start: 20110301, end: 20111105

REACTIONS (17)
  - HYPOPHAGIA [None]
  - PLEURAL EFFUSION [None]
  - HERPES OESOPHAGITIS [None]
  - COUGH [None]
  - OEDEMA PERIPHERAL [None]
  - PULMONARY OEDEMA [None]
  - RENAL FAILURE [None]
  - DYSPNOEA [None]
  - WEIGHT DECREASED [None]
  - INFECTION [None]
  - PULMONARY FIBROSIS [None]
  - PNEUMONITIS [None]
  - PULMONARY FUNCTION TEST ABNORMAL [None]
  - ARTHRALGIA [None]
  - HERPES SIMPLEX [None]
  - DYSPHAGIA [None]
  - FATIGUE [None]
